FAERS Safety Report 4946459-2 (Version None)
Quarter: 2006Q1

REPORT INFORMATION
  Report Type: 
  Country: None (occurrence: None)
  Receive Date: 20060317
  Receipt Date: 20060309
  Transmission Date: 20060701
  Serious: Yes (Life-Threatening)
  Sender: FDA-Public Use
  Company Number: NO-AVENTIS-200612310GDDC

PATIENT
  Age: 51 Year
  Sex: Female

DRUGS (9)
  1. FLAGYL [Suspect]
     Indication: ANTIBIOTIC PROPHYLAXIS
     Dosage: DOSE: 1.5 G
     Route: 042
     Dates: end: 20060223
  2. NIMBEX [Suspect]
     Indication: INDUCTION OF ANAESTHESIA
     Dosage: DOSE: 10 MG
     Route: 042
     Dates: start: 20060223, end: 20060223
  3. FENTANYL [Suspect]
     Indication: INDUCTION OF ANAESTHESIA
     Dosage: DOSE: 0.2 MG
     Dates: start: 20060215, end: 20060223
  4. DROPERIDOL [Suspect]
     Route: 042
     Dates: start: 20060212, end: 20060223
  5. DEXAMETHASONE TAB [Suspect]
     Dates: start: 20060223, end: 20060223
  6. EFEDRIN [Suspect]
     Dosage: DOSE: 10 MG KL 12.30
     Route: 042
     Dates: start: 20060223, end: 20060223
  7. EFEDRIN [Suspect]
     Dosage: DOSE: 25 MG KL 13.00
     Route: 030
     Dates: start: 20060223, end: 20060223
  8. PENTOTHAL [Suspect]
     Indication: INDUCTION OF ANAESTHESIA
     Route: 042
     Dates: start: 20061215, end: 20061223
  9. NOREPINEPHRINE [Concomitant]
     Dosage: DOSE: 0.03 MG/HR
     Route: 042
     Dates: start: 20060223

REACTIONS (3)
  - ANAESTHETIC COMPLICATION [None]
  - HYPOTENSION [None]
  - HYPOXIA [None]
